FAERS Safety Report 18799931 (Version 1)
Quarter: 2021Q1

REPORT INFORMATION
  Report Type: Spontaneous
  Country: US (occurrence: US)
  Receive Date: 20210128
  Receipt Date: 20210128
  Transmission Date: 20210419
  Serious: No
  Sender: FDA-Public Use
  Company Number: US-TEVA-2021-US-1872419

PATIENT
  Sex: Female

DRUGS (5)
  1. ATENOLOL. [Suspect]
     Active Substance: ATENOLOL
     Route: 065
  2. MAGNESIUM SUPPLEMENT [Concomitant]
     Active Substance: MAGNESIUM
  3. MAGNESIUM SUPPLEMENT [Concomitant]
     Active Substance: MAGNESIUM
  4. ATENOLOL. [Suspect]
     Active Substance: ATENOLOL
     Route: 065
  5. LENVIMA [Suspect]
     Active Substance: LENVATINIB
     Indication: ENDOMETRIAL CANCER
     Route: 065
     Dates: start: 20201231

REACTIONS (4)
  - Fatigue [Unknown]
  - Blood pressure fluctuation [Unknown]
  - Dizziness [Recovered/Resolved]
  - Muscle spasms [Unknown]
